FAERS Safety Report 5263746-1 (Version None)
Quarter: 2007Q1

REPORT INFORMATION
  Report Type: 
  Country: None (occurrence: None)
  Receive Date: 20061213
  Receipt Date: 20050407
  Transmission Date: 20070707
  Serious: Yes (Other)
  Sender: FDA-Public Use
  Company Number: 2004UW21184

PATIENT
  Sex: Female

DRUGS (1)
  1. IRESSA [Suspect]
     Dosage: 250 MG DAILY

REACTIONS (3)
  - HERPES ZOSTER [None]
  - HYPERKERATOSIS [None]
  - IMPAIRED HEALING [None]
